FAERS Safety Report 20231846 (Version 1)
Quarter: 2021Q4

REPORT INFORMATION
  Report Type: Spontaneous
  Country: US (occurrence: US)
  Receive Date: 20211227
  Receipt Date: 20211227
  Transmission Date: 20220303
  Serious: Yes (Hospitalization)
  Sender: FDA-Public Use
  Company Number: US-ELI_LILLY_AND_COMPANY-US202112010833

PATIENT
  Sex: Female

DRUGS (6)
  1. TRULICITY [Suspect]
     Active Substance: DULAGLUTIDE
     Indication: Product used for unknown indication
     Dosage: 1.5 MG, UNKNOWN
     Route: 065
  2. TRULICITY [Suspect]
     Active Substance: DULAGLUTIDE
     Dosage: 1.5 MG, UNKNOWN
     Route: 065
     Dates: start: 202108
  3. HUMALOG [Suspect]
     Active Substance: INSULIN LISPRO
     Indication: Product used for unknown indication
     Dosage: UNK UNK, UNKNOWN
     Route: 065
  4. LANTUS [Concomitant]
     Active Substance: INSULIN GLARGINE
     Indication: Product used for unknown indication
     Dosage: 42 U, EACH MORNING
  5. LANTUS [Concomitant]
     Active Substance: INSULIN GLARGINE
     Dosage: 26 U, OTHER (AT LUNCH)
  6. LANTUS [Concomitant]
     Active Substance: INSULIN GLARGINE
     Dosage: 42 U, EACH EVENING (BEFORE BEDTIME)

REACTIONS (7)
  - Haemorrhoids [Unknown]
  - Staphylococcal infection [Unknown]
  - Irritable bowel syndrome [Unknown]
  - Large intestine infection [Unknown]
  - Urinary tract infection [Unknown]
  - Gastrooesophageal reflux disease [Unknown]
  - Diarrhoea [Unknown]
